FAERS Safety Report 21693141 (Version 1)
Quarter: 2022Q4

REPORT INFORMATION
  Report Type: Spontaneous
  Country: GB (occurrence: GB)
  Receive Date: 20221207
  Receipt Date: 20221207
  Transmission Date: 20230113
  Serious: Yes (Other)
  Sender: FDA-Public Use
  Company Number: GB-RP-024246

PATIENT
  Age: 63 Year
  Sex: Male

DRUGS (33)
  1. SERTRALINE [Suspect]
     Active Substance: SERTRALINE HYDROCHLORIDE
     Indication: Product used for unknown indication
     Dosage: 200 MILLIGRAM, QD
     Route: 065
     Dates: start: 201407, end: 201408
  2. PREGABALIN [Suspect]
     Active Substance: PREGABALIN
     Indication: Depression
     Dosage: UNK
     Route: 065
     Dates: start: 201410
  3. PREGABALIN [Suspect]
     Active Substance: PREGABALIN
     Indication: Anxiety
     Dosage: 150 MILLIGRAM (TIME INTERVAL: 0.33 D)
     Route: 065
     Dates: start: 201501, end: 201502
  4. PREGABALIN [Suspect]
     Active Substance: PREGABALIN
     Dosage: 150 MILLIGRAM (DEPRESSED AND ANXIOUS; TIME INTERVAL: 0.33 D)
     Route: 065
     Dates: start: 201503, end: 201506
  5. PREGABALIN [Suspect]
     Active Substance: PREGABALIN
     Dosage: 150 MILLIGRAM (DEPRESSED AND ANXIOUS; TIME INTERVAL: 0.33 D)
     Dates: start: 201506
  6. PREGABALIN [Suspect]
     Active Substance: PREGABALIN
     Dosage: 150 MILLIGRAM (TIME INTERVAL: 0.33 D)
     Route: 065
     Dates: start: 201509
  7. PREGABALIN [Suspect]
     Active Substance: PREGABALIN
     Dosage: 150 MILLIGRAM (DEPRESSED AND ANXIOUS; TIME INTERVAL: 0.33 D)
     Route: 065
     Dates: start: 201511
  8. PREGABALIN [Suspect]
     Active Substance: PREGABALIN
     Dosage: 150 MILLIGRAM (DEPRESSED AND ANXIOUS; TIME INTERVAL: 0.33 D)
     Dates: start: 201601, end: 201703
  9. FLUOXETINE [Suspect]
     Active Substance: FLUOXETINE HYDROCHLORIDE
     Indication: Product used for unknown indication
     Dosage: UNK
     Route: 065
     Dates: start: 201509, end: 201509
  10. LOFEPRAMINE [Suspect]
     Active Substance: LOFEPRAMINE
     Indication: Depression
     Dosage: 70 MILLIGRAM, QD
     Route: 065
     Dates: start: 201411, end: 201411
  11. OLANZAPINE [Suspect]
     Active Substance: OLANZAPINE
     Indication: Mania
     Dosage: 5 MILLIGRAM NOCTE. FIRST EPISODE OF MANIA
     Route: 065
     Dates: start: 201307
  12. OLANZAPINE [Suspect]
     Active Substance: OLANZAPINE
     Indication: Depression
     Dosage: 10 MILLIGRAM DEPRESSED AND ANXIOUS
     Route: 065
     Dates: start: 201311, end: 201406
  13. OLANZAPINE [Suspect]
     Active Substance: OLANZAPINE
     Dosage: 10 MILLIGRAM DEPRESSED AND ANXIOUS
     Route: 065
     Dates: start: 201407, end: 201408
  14. OLANZAPINE [Suspect]
     Active Substance: OLANZAPINE
     Dosage: 10 MILLIGRAM
     Route: 065
     Dates: start: 201409
  15. OLANZAPINE [Suspect]
     Active Substance: OLANZAPINE
     Dosage: 7.5 MILLIGRAM DEPRESSED AND ANXIOUS
     Route: 065
     Dates: start: 201410
  16. OLANZAPINE [Suspect]
     Active Substance: OLANZAPINE
     Dosage: UNK DEPRESSED AND ANXIOUS
     Route: 065
     Dates: end: 201411
  17. VENLAFAXINE [Suspect]
     Active Substance: VENLAFAXINE HYDROCHLORIDE
     Indication: Depression
     Dosage: 75 MILLIGRAM, BID
     Route: 065
     Dates: start: 201409
  18. VENLAFAXINE [Suspect]
     Active Substance: VENLAFAXINE HYDROCHLORIDE
     Indication: Anxiety
  19. ARIPIPRAZOLE [Concomitant]
     Active Substance: ARIPIPRAZOLE
     Indication: Product used for unknown indication
     Dosage: 5 MILLIGRAM
     Route: 065
  20. DIAZEPAM [Concomitant]
     Active Substance: DIAZEPAM
     Indication: Depression
     Dosage: 5 MILLIGRAM (DEPRESSED AND ANXIOUS)
     Dates: start: 201503, end: 201506
  21. DIAZEPAM [Concomitant]
     Active Substance: DIAZEPAM
     Indication: Anxiety
     Dosage: 5 MILLIGRAM (DEPRESSED AND ANXIOUS.STOPPED BY THE PATIENT HIMSELF (IMPROVEMENT IN ANXIETY)
     Route: 065
     Dates: start: 201601, end: 201703
  22. DIAZEPAM [Concomitant]
     Active Substance: DIAZEPAM
     Dosage: 5 MILLIGRAM (DEPRESSED AND ANXIOUS)
     Route: 065
     Dates: start: 201511
  23. DIAZEPAM [Concomitant]
     Active Substance: DIAZEPAM
     Dosage: 5 MILLIGRAM (DEPRESSED AND ANXIOUS)
     Route: 065
     Dates: start: 201509
  24. DIAZEPAM [Concomitant]
     Active Substance: DIAZEPAM
     Dosage: 5 MILLIGRAM (PRN ORAL FOR ANXIETY)
     Route: 065
     Dates: start: 201411
  25. DIAZEPAM [Concomitant]
     Active Substance: DIAZEPAM
     Dosage: 5 MILLIGRAM (DEPRESSED AND ANXIOUS)
     Dates: start: 201501, end: 201502
  26. DIAZEPAM [Concomitant]
     Active Substance: DIAZEPAM
     Dosage: 5 MILLIGRAM (DEPRESSED AND ANXIOUS)
     Route: 065
     Dates: start: 201506
  27. LAMOTRIGINE [Concomitant]
     Active Substance: LAMOTRIGINE
     Indication: Product used for unknown indication
     Dosage: UNK
     Route: 065
     Dates: start: 201511, end: 201511
  28. MIRTAZAPINE [Concomitant]
     Active Substance: MIRTAZAPINE
     Indication: Depression
     Dosage: 45 MILLIGRAM
     Route: 065
     Dates: start: 201704
  29. MIRTAZAPINE [Concomitant]
     Active Substance: MIRTAZAPINE
     Dosage: 30 MILLIGRAM
     Route: 065
     Dates: start: 201503
  30. QUETIAPINE [Concomitant]
     Active Substance: QUETIAPINE
     Indication: Depression
     Dosage: 100 MILLIGRAM (DEPRESSED AND ANXIOUS)
     Route: 065
     Dates: start: 201503, end: 201506
  31. QUETIAPINE [Concomitant]
     Active Substance: QUETIAPINE
     Indication: Anxiety
     Dosage: 100 MILLIGRAM (DEPRESSED AND ANXIOUS)
     Route: 065
     Dates: start: 201501, end: 201502
  32. VORTIOXETINE [Concomitant]
     Active Substance: VORTIOXETINE
     Indication: Product used for unknown indication
     Dosage: 5 MG, QD
     Route: 065
     Dates: start: 201704
  33. VORTIOXETINE [Concomitant]
     Active Substance: VORTIOXETINE
     Dosage: 15 MG, QD
     Route: 065

REACTIONS (2)
  - Inappropriate antidiuretic hormone secretion [Not Recovered/Not Resolved]
  - Hyponatraemia [Not Recovered/Not Resolved]
